FAERS Safety Report 8957466 (Version 1)
Quarter: 2012Q4

REPORT INFORMATION
  Report Type: Report from Study
  Country: US (occurrence: US)
  Receive Date: 20121210
  Receipt Date: 20121210
  Transmission Date: 20130627
  Serious: Yes (Other)
  Sender: FDA-Public Use
  Company Number: US-ABBOTT-12P-163-1017241-00

PATIENT
  Sex: Female
  Weight: 62.2 kg

DRUGS (4)
  1. LUPRON DEPOT [Suspect]
     Indication: ENDOMETRIOSIS
     Route: 030
     Dates: start: 1995, end: 1996
  2. LUPRON DEPOT [Suspect]
     Dates: start: 1997, end: 1997
  3. NAFARELIN [Concomitant]
     Indication: ENDOMETRIOSIS
     Dosage: Spray
     Route: 045
  4. UNKNOWN NASAL DROPS [Concomitant]
     Indication: ENDOMETRIOSIS

REACTIONS (2)
  - Hysterectomy [Recovered/Resolved]
  - Endometriosis [Recovered/Resolved]
